FAERS Safety Report 10403881 (Version 1)
Quarter: 2014Q3

REPORT INFORMATION
  Report Type: Spontaneous
  Country: US (occurrence: US)
  Receive Date: 20140822
  Receipt Date: 20140822
  Transmission Date: 20150326
  Serious: No
  Sender: FDA-Public Use
  Company Number: US-NOVEN-14US009780

PATIENT
  Sex: Female

DRUGS (6)
  1. MINIVELLE [Suspect]
     Active Substance: ESTRADIOL
     Indication: HOT FLUSH
     Dosage: 0.0375MG/DAY; 1/WK
     Route: 062
     Dates: start: 201311
  2. PROGESTERONE. [Concomitant]
     Active Substance: PROGESTERONE
     Indication: HOT FLUSH
     Dosage: UNK
     Route: 048
  3. ESTRADIOL. [Concomitant]
     Active Substance: ESTRADIOL
     Indication: HOT FLUSH
     Dosage: ON DAYS SHE DOES NOT APPLY A PATCH
     Route: 048
  4. MINIVELLE [Suspect]
     Active Substance: ESTRADIOL
     Indication: NIGHT SWEATS
  5. PROGESTERONE. [Concomitant]
     Active Substance: PROGESTERONE
     Indication: NIGHT SWEATS
  6. ESTRADIOL. [Concomitant]
     Active Substance: ESTRADIOL
     Indication: NIGHT SWEATS

REACTIONS (3)
  - No adverse event [None]
  - Inappropriate schedule of drug administration [Not Recovered/Not Resolved]
  - Product packaging quantity issue [Not Recovered/Not Resolved]
